FAERS Safety Report 9354872 (Version 3)
Quarter: 2013Q3

REPORT INFORMATION
  Report Type: Spontaneous
  Country: US (occurrence: US)
  Receive Date: 20130619
  Receipt Date: 20130808
  Transmission Date: 20140515
  Serious: Yes (Other)
  Sender: FDA-Public Use
  Company Number: US-BIOGENIDEC-2013BI052665

PATIENT
  Age: 41 Year
  Sex: Female

DRUGS (3)
  1. AVONEX [Suspect]
     Indication: MULTIPLE SCLEROSIS
     Route: 030
  2. AVONEX [Suspect]
     Indication: MULTIPLE SCLEROSIS
     Route: 030
     Dates: start: 20130201
  3. AVONEX [Suspect]
     Indication: MULTIPLE SCLEROSIS
     Route: 030
     Dates: start: 20130215

REACTIONS (26)
  - Cerebrovascular accident [Not Recovered/Not Resolved]
  - Decreased interest [Not Recovered/Not Resolved]
  - Crying [Not Recovered/Not Resolved]
  - Paranoia [Not Recovered/Not Resolved]
  - Speech disorder [Not Recovered/Not Resolved]
  - Stress [Not Recovered/Not Resolved]
  - General symptom [Not Recovered/Not Resolved]
  - Feeling of despair [Not Recovered/Not Resolved]
  - Hypophagia [Not Recovered/Not Resolved]
  - Reading disorder [Not Recovered/Not Resolved]
  - Memory impairment [Recovered/Resolved]
  - Hypertension [Not Recovered/Not Resolved]
  - Frustration [Not Recovered/Not Resolved]
  - Tachyphrenia [Not Recovered/Not Resolved]
  - Mobility decreased [Not Recovered/Not Resolved]
  - Mental impairment [Not Recovered/Not Resolved]
  - Face injury [Recovered/Resolved]
  - Loss of control of legs [Recovered/Resolved]
  - Transient ischaemic attack [Not Recovered/Not Resolved]
  - Eye injury [Recovered/Resolved]
  - Fall [Recovered/Resolved]
  - Gait disturbance [Recovered/Resolved]
  - Neck pain [Not Recovered/Not Resolved]
  - Headache [Recovered/Resolved]
  - Anxiety [Not Recovered/Not Resolved]
  - Arthralgia [Not Recovered/Not Resolved]
